FAERS Safety Report 4594463-9 (Version None)
Quarter: 2005Q1

REPORT INFORMATION
  Report Type: 
  Country: None (occurrence: None)
  Receive Date: 20050301
  Receipt Date: 20040312
  Transmission Date: 20050727
  Serious: No
  Sender: FDA-Public Use
  Company Number: US-GLAXOSMITHKLINE-A0502571A

PATIENT
  Age: 21 Year
  Sex: Female

DRUGS (4)
  1. VALTREX [Suspect]
     Dosage: 1G TWICE PER DAY
     Route: 048
     Dates: start: 20040310
  2. ADVAIR DISKUS 100/50 [Concomitant]
  3. EFFEXOR [Concomitant]
  4. ABILIFY [Concomitant]

REACTIONS (5)
  - ABDOMINAL PAIN LOWER [None]
  - CHILLS [None]
  - HEADACHE [None]
  - HYPERHIDROSIS [None]
  - NAUSEA [None]
